FAERS Safety Report 9377519 (Version 1)
Quarter: 2013Q3

REPORT INFORMATION
  Report Type: Spontaneous
  Country: JP (occurrence: JP)
  Receive Date: 20130701
  Receipt Date: 20130701
  Transmission Date: 20140515
  Serious: Yes (Hospitalization)
  Sender: FDA-Public Use
  Company Number: JP-ASTRAZENECA-2013SE29544

PATIENT
  Sex: 0

DRUGS (1)
  1. CRESTOR [Suspect]
     Dosage: 13 TABLETS, 32.5 MILLIGRAMS
     Route: 048

REACTIONS (1)
  - Overdose [Unknown]
